FAERS Safety Report 16074332 (Version 1)
Quarter: 2019Q1

REPORT INFORMATION
  Report Type: Spontaneous
  Country: US (occurrence: US)
  Receive Date: 20190314
  Receipt Date: 20190314
  Transmission Date: 20190418
  Serious: No
  Sender: FDA-Public Use
  Company Number: US-HISAMITSU-2018-US-016293

PATIENT
  Age: 73 Year
  Sex: Female
  Weight: 58.97 kg

DRUGS (7)
  1. MAGNESIUM [Concomitant]
     Active Substance: MAGNESIUM
  2. NATURE-THROID [Concomitant]
     Active Substance: THYROID, PORCINE
  3. MULTIVITAMIN [Concomitant]
     Active Substance: VITAMINS
  4. SALONPAS PAIN RELIEF [Suspect]
     Active Substance: MENTHOL\METHYL SALICYLATE
     Indication: ANALGESIC THERAPY
     Dosage: APPLIED TO SHOULDER AREA
     Route: 061
     Dates: start: 20180829, end: 20180829
  5. VITAMIN D [Concomitant]
     Active Substance: CHOLECALCIFEROL
  6. VITAMIN C [Concomitant]
     Active Substance: ASCORBIC ACID
  7. CALCIUM [Concomitant]
     Active Substance: CALCIUM

REACTIONS (4)
  - Rhinorrhoea [Recovered/Resolved]
  - Sneezing [Recovered/Resolved]
  - Nasopharyngitis [None]
  - Product residue present [None]

NARRATIVE: CASE EVENT DATE: 20180829
